FAERS Safety Report 10020557 (Version 1)
Quarter: 2014Q1

REPORT INFORMATION
  Report Type: Spontaneous
  Country: US (occurrence: US)
  Receive Date: 20140319
  Receipt Date: 20140319
  Transmission Date: 20141002
  Serious: No
  Sender: FDA-Public Use
  Company Number: US-BIOGENIDEC-2014BI023533

PATIENT
  Age: 57 Year
  Sex: Female

DRUGS (7)
  1. TECFIDERA [Suspect]
     Indication: MULTIPLE SCLEROSIS
     Route: 048
     Dates: start: 20140110, end: 20140117
  2. TECFIDERA [Suspect]
     Indication: MULTIPLE SCLEROSIS
     Route: 048
     Dates: start: 20140118, end: 20140304
  3. SPRIVA [Concomitant]
  4. ALBUTEROL [Concomitant]
  5. ADVAIR [Concomitant]
  6. ALBUTEROL/IPATROIUM [Concomitant]
  7. EVISTA [Concomitant]

REACTIONS (2)
  - Arthralgia [Recovered/Resolved]
  - Muscular weakness [Recovered/Resolved]
